FAERS Safety Report 12226886 (Version 1)
Quarter: 2016Q1

REPORT INFORMATION
  Report Type: Spontaneous
  Country: US (occurrence: US)
  Receive Date: 20160331
  Receipt Date: 20160331
  Transmission Date: 20160526
  Serious: Yes (Other)
  Sender: FDA-Public Use
  Company Number: US-PFIZER INC-2016178020

PATIENT
  Age: 86 Year

DRUGS (1)
  1. LYRICA [Suspect]
     Active Substance: PREGABALIN
     Dosage: UNK

REACTIONS (5)
  - Muscular weakness [Unknown]
  - Diabetes mellitus [Unknown]
  - Fall [Unknown]
  - Motor dysfunction [Unknown]
  - Limb discomfort [Unknown]
